FAERS Safety Report 6238070-0 (Version None)
Quarter: 2009Q2

REPORT INFORMATION
  Report Type: 
  Country: None (occurrence: None)
  Receive Date: 20090617
  Receipt Date: 20090617
  Transmission Date: 20091009
  Serious: Yes (Other)
  Sender: FDA-Public Use
  Company Number: None

PATIENT
  Age: 63 Year
  Sex: Male
  Weight: 70.7611 kg

DRUGS (3)
  1. MOXIFLOXACIN HCL [Suspect]
     Indication: COUGH
     Dosage: ONE PILL ONLY
  2. MOXIFLOXACIN HCL [Suspect]
     Indication: NASOPHARYNGITIS
     Dosage: ONE PILL ONLY
  3. MOXIFLOXACIN HCL [Suspect]
     Indication: PYREXIA
     Dosage: ONE PILL ONLY

REACTIONS (3)
  - CHILLS [None]
  - HYPOAESTHESIA [None]
  - PARAESTHESIA [None]
